FAERS Safety Report 6269908-9 (Version None)
Quarter: 2009Q3

REPORT INFORMATION
  Report Type: 
  Country: None (occurrence: None)
  Receive Date: 20090716
  Receipt Date: 20090707
  Transmission Date: 20100115
  Serious: Yes (Other)
  Sender: FDA-Public Use
  Company Number: PHEH2008US04569

PATIENT
  Sex: Female

DRUGS (2)
  1. ZOMETA [Suspect]
  2. AREDIA [Suspect]
     Dosage: MONTHLY

REACTIONS (13)
  - ANHEDONIA [None]
  - ANXIETY [None]
  - BONE DISORDER [None]
  - BONE LESION [None]
  - DEBRIDEMENT [None]
  - DISABILITY [None]
  - INJURY [None]
  - METASTASES TO BONE [None]
  - OSTEONECROSIS [None]
  - PAIN [None]
  - PAIN IN JAW [None]
  - THYROID CANCER [None]
  - THYROIDECTOMY [None]
